FAERS Safety Report 20312450 (Version 1)
Quarter: 2022Q1

REPORT INFORMATION
  Report Type: Spontaneous
  Country: US (occurrence: None)
  Receive Date: 20220107
  Receipt Date: 20220107
  Transmission Date: 20220424
  Serious: No
  Sender: FDA-Public Use
  Company Number: None

PATIENT
  Age: 70 Year
  Sex: Female
  Weight: 51.75 kg

DRUGS (1)
  1. REGEN-COV [Suspect]
     Active Substance: CASIRIVIMAB\IMDEVIMAB
     Indication: COVID-19
     Dates: start: 20220105, end: 20220105

REACTIONS (6)
  - Chest discomfort [None]
  - Cough [None]
  - Secretion discharge [None]
  - Sputum discoloured [None]
  - Oxygen saturation decreased [None]
  - Oropharyngeal pain [None]

NARRATIVE: CASE EVENT DATE: 20220107
